FAERS Safety Report 21147939 (Version 1)
Quarter: 2022Q3

REPORT INFORMATION
  Report Type: Spontaneous
  Country: VE (occurrence: VE)
  Receive Date: 20220729
  Receipt Date: 20220729
  Transmission Date: 20221027
  Serious: Yes (Death, Other)
  Sender: FDA-Public Use
  Company Number: VE-TAKEDA-2020TUS027244

PATIENT
  Sex: Female

DRUGS (4)
  1. ICLUSIG [Suspect]
     Active Substance: PONATINIB
     Indication: Philadelphia positive acute lymphocytic leukaemia
     Dosage: 45 MILLIGRAM
     Route: 065
  2. ICLUSIG [Suspect]
     Active Substance: PONATINIB
     Dosage: 30 MILLIGRAM
     Route: 065
  3. ICLUSIG [Suspect]
     Active Substance: PONATINIB
     Dosage: 45 MILLIGRAM
     Route: 065
  4. ICLUSIG [Suspect]
     Active Substance: PONATINIB
     Dosage: 15 MILLIGRAM, QD
     Route: 065

REACTIONS (15)
  - Lung disorder [Fatal]
  - Thrombosis [Fatal]
  - Myocardial infarction [Fatal]
  - Neutropenia [Unknown]
  - Dermatitis allergic [Unknown]
  - Drug eruption [Unknown]
  - SARS-CoV-2 test positive [Unknown]
  - Blood triglycerides increased [Unknown]
  - Herpes zoster [Unknown]
  - Haemoglobin decreased [Unknown]
  - White blood cell count decreased [Unknown]
  - Blood cholesterol increased [Unknown]
  - Rash [Recovering/Resolving]
  - Pain [Unknown]
  - Hypertension [Unknown]
